FAERS Safety Report 8229941-4 (Version None)
Quarter: 2012Q1

REPORT INFORMATION
  Report Type: 
  Country: None (occurrence: None)
  Receive Date: 20120323
  Receipt Date: 20120313
  Transmission Date: 20120608
  Serious: No
  Sender: FDA-Public Use
  Company Number: US-BIOGENIDEC-2012BI009098

PATIENT
  Sex: Female

DRUGS (3)
  1. AVONEX [Concomitant]
     Indication: MULTIPLE SCLEROSIS
     Route: 030
     Dates: start: 20020221
  2. TYSABRI [Suspect]
     Route: 042
     Dates: start: 20110101
  3. TYSABRI [Suspect]
     Indication: MULTIPLE SCLEROSIS
     Route: 042
     Dates: start: 20050113, end: 20110101

REACTIONS (8)
  - ANAEMIA [None]
  - MEMORY IMPAIRMENT [None]
  - WHITE BLOOD CELL COUNT INCREASED [None]
  - HYPOTHYROIDISM [None]
  - HYPOAESTHESIA [None]
  - PARAESTHESIA [None]
  - GENERAL SYMPTOM [None]
  - PAIN [None]
